FAERS Safety Report 8956438 (Version 2)
Quarter: 2012Q4

REPORT INFORMATION
  Report Type: 
  Country: JP (occurrence: JP)
  Receive Date: 20121210
  Receipt Date: 20121219
  Transmission Date: 20130627
  Serious: Yes (Life-Threatening, Hospitalization)
  Sender: FDA-Public Use
  Company Number: JP-PFIZER INC-2012306674

PATIENT
  Age: 1 Month
  Sex: Female

DRUGS (1)
  1. AMLODIN [Suspect]
     Dosage: UNK
     Route: 048

REACTIONS (3)
  - Accidental exposure to product by child [Unknown]
  - Accidental overdose [Unknown]
  - Cardiogenic shock [Not Recovered/Not Resolved]
